FAERS Safety Report 5458052-6 (Version None)
Quarter: 2007Q3

REPORT INFORMATION
  Report Type: 
  Country: None (occurrence: None)
  Receive Date: 20070919
  Receipt Date: 20070912
  Transmission Date: 20080115
  Serious: Yes (Other)
  Sender: FDA-Public Use
  Company Number: PHBS2007JP15088

PATIENT
  Age: 62 Year
  Sex: Female

DRUGS (16)
  1. TEGRETOL [Suspect]
     Dosage: 600 MG/DAY
     Route: 048
  2. TEGRETOL [Suspect]
     Dosage: 300 MG/DAY
     Route: 048
  3. HALOPERIDOL [Concomitant]
     Dosage: 4.5 MG/DAY
     Route: 065
  4. CLOCAPRAMINE HYDROCHLORIDE [Concomitant]
     Dosage: 75 MG/DAY
     Route: 065
  5. PROPERICIAZINE [Concomitant]
     Route: 065
  6. VEGETAMIN A [Concomitant]
     Dosage: 1 DF/DAY
     Route: 065
  7. BIPERIDEN HYDROCHLORIDE TAB [Concomitant]
     Route: 065
  8. TRIHEXYPHENIDYL HYDROCHLORIDE [Concomitant]
     Dosage: 6 MG/DAY
     Route: 065
  9. RISPERIDONE [Concomitant]
  10. PIPAMPERONE HYDROCHLORIDE [Concomitant]
     Dosage: 150 MG/DAY
     Route: 065
  11. VEGETAMIN B [Concomitant]
     Dosage: 1 DF/DAY
     Route: 065
  12. ZOPICLONE [Concomitant]
     Dosage: 10 MG/DAY
     Route: 065
  13. ZONISAMIDE [Concomitant]
     Route: 065
  14. BROMAZEPAM [Concomitant]
     Dosage: 2 MG/DAY
     Route: 065
  15. ARIPIPRAZOLE [Concomitant]
     Route: 065
  16. PROMETHAZINE TEOCLATE [Concomitant]
     Dosage: 25 MG/DAY
     Route: 065

REACTIONS (6)
  - CHEST DISCOMFORT [None]
  - DYSKINESIA [None]
  - FEELING ABNORMAL [None]
  - HALLUCINATION [None]
  - HALLUCINATION, AUDITORY [None]
  - INITIAL INSOMNIA [None]
